FAERS Safety Report 18605007 (Version 1)
Quarter: 2020Q4

REPORT INFORMATION
  Report Type: Spontaneous
  Country: US (occurrence: US)
  Receive Date: 20201211
  Receipt Date: 20201211
  Transmission Date: 20210114
  Serious: Yes (Other)
  Sender: FDA-Public Use
  Company Number: None

PATIENT
  Age: 63 Year
  Sex: Female
  Weight: 50.85 kg

DRUGS (33)
  1. GABAPENTIN. [Concomitant]
     Active Substance: GABAPENTIN
  2. B-100 COMPLEX [Concomitant]
     Active Substance: DEXPANTHENOL\NIACINAMIDE\PYRIDOXINE HYDROCHLORIDE\RIBOFLAVIN 5^-PHOSPHATE SODIUM\THIAMINE HYDROCHLORIDE
  3. VITAMIN B-2 [Concomitant]
  4. ZYRTEC [Concomitant]
     Active Substance: CETIRIZINE HYDROCHLORIDE
  5. CINNAMON. [Concomitant]
     Active Substance: CINNAMON
  6. VITAMIN D [Concomitant]
     Active Substance: VITAMIN D NOS
  7. COENZYME Q10 [Concomitant]
     Active Substance: DIETARY SUPPLEMENT\UBIDECARENONE
  8. PROPRANOLOL [Concomitant]
     Active Substance: PROPRANOLOL HYDROCHLORIDE
  9. ERYTHROMYCIN EYE OINTMENT [Concomitant]
     Active Substance: ERYTHROMYCIN
  10. FISH OIL [Concomitant]
     Active Substance: FISH OIL
  11. FOLIC ACID. [Concomitant]
     Active Substance: FOLIC ACID
  12. PROBIOTIC [Concomitant]
     Active Substance: PROBIOTICS NOS
  13. FIBER [Concomitant]
     Active Substance: PSYLLIUM HUSK
  14. PREVAVISION [Concomitant]
  15. POTASSIUM [Concomitant]
     Active Substance: POTASSIUM
  16. MSM [Concomitant]
     Active Substance: DIMETHYL SULFONE
  17. SENEKOT [Concomitant]
  18. CALCIUM/VIT D [Concomitant]
  19. OXCARBAZEPINE (300 MG TABS) [Suspect]
     Active Substance: OXCARBAZEPINE
     Indication: BIPOLAR DISORDER
     Dosage: ?          QUANTITY:60 TABLET(S);?
     Route: 048
     Dates: start: 20201128, end: 20201211
  20. RESTASIS [Concomitant]
     Active Substance: CYCLOSPORINE
  21. FLAX SEED [Concomitant]
     Active Substance: FLAX SEED
  22. CURCUMIN [Concomitant]
     Active Substance: CURCUMIN
  23. OMEGA 3 [Concomitant]
     Active Substance: OMEGA-3 FATTY ACIDS
  24. EVENING PRIMROSE OIL [Concomitant]
     Active Substance: EVENING PRIMROSE OIL\HERBALS
  25. VITAMIN C [Concomitant]
     Active Substance: ASCORBIC ACID
  26. MANESIUM MALATE [Concomitant]
  27. QUERCETIN NAC [Concomitant]
  28. TRAZODONE [Concomitant]
     Active Substance: TRAZODONE HYDROCHLORIDE
  29. HYDROCHLOROTHIAZIDE. [Concomitant]
     Active Substance: HYDROCHLOROTHIAZIDE
  30. SUDAFED PE CONGESTION [Concomitant]
     Active Substance: PHENYLEPHRINE HYDROCHLORIDE
  31. COLLAGEN [Concomitant]
     Active Substance: COLLAGEN
  32. LEVOTHROID [Concomitant]
     Active Substance: LEVOTHYROXINE SODIUM
  33. VITAMIN E [Concomitant]
     Active Substance: .ALPHA.-TOCOPHEROL

REACTIONS (1)
  - Diplopia [None]

NARRATIVE: CASE EVENT DATE: 20201210
